FAERS Safety Report 5100590-X (Version None)
Quarter: 2006Q3

REPORT INFORMATION
  Report Type: 
  Country: None (occurrence: None)
  Receive Date: 20060907
  Receipt Date: 20060907
  Transmission Date: 20061208
  Serious: No
  Sender: FDA-Public Use
  Company Number: None

PATIENT
  Age: 92 Year
  Sex: Male
  Weight: 114.3065 kg

DRUGS (1)
  1. FLOMAX [Suspect]
     Indication: URINE FLOW DECREASED
     Dosage: 0.4 MG PO DAILY
     Route: 048

REACTIONS (3)
  - CATARACT OPERATION COMPLICATION [None]
  - IRIS DISORDER [None]
  - PUPILLARY LIGHT REFLEX TESTS ABNORMAL [None]
